FAERS Safety Report 18938325 (Version 2)
Quarter: 2021Q1

REPORT INFORMATION
  Report Type: Spontaneous
  Country: US (occurrence: US)
  Receive Date: 20210225
  Receipt Date: 20210304
  Transmission Date: 20210420
  Serious: Yes (Other)
  Sender: FDA-Public Use
  Company Number: US-PFIZER INC-2021166242

PATIENT
  Age: 30 Year
  Sex: Female

DRUGS (2)
  1. TESTOSTERONE CIPIONATE [Suspect]
     Active Substance: TESTOSTERONE
     Indication: HORMONE THERAPY
     Dosage: 140 MG, WEEKLY(DOSE INCREASED)
  2. TESTOSTERONE CIPIONATE [Suspect]
     Active Substance: TESTOSTERONE
     Indication: VIRILISM
     Dosage: 100 MG, WEEKLY

REACTIONS (3)
  - Off label use [Recovering/Resolving]
  - Acne [Recovering/Resolving]
  - Hidradenitis [Recovering/Resolving]
